FAERS Safety Report 9907207 (Version 1)
Quarter: 2014Q1

REPORT INFORMATION
  Report Type: Report from Study
  Country: LB (occurrence: LB)
  Receive Date: 20140218
  Receipt Date: 20140218
  Transmission Date: 20141002
  Serious: Yes (Other)
  Sender: FDA-Public Use
  Company Number: LB-SA-2014SA016411

PATIENT
  Age: 78 Year
  Sex: 0

DRUGS (5)
  1. LANTUS [Suspect]
     Indication: TYPE 2 DIABETES MELLITUS
     Route: 065
  2. OMIC [Concomitant]
  3. COVERSYL [Concomitant]
  4. CONCOR [Concomitant]
  5. LASIX [Concomitant]

REACTIONS (1)
  - Angioplasty [Unknown]
